FAERS Safety Report 5470285-1 (Version None)
Quarter: 2007Q3

REPORT INFORMATION
  Report Type: 
  Country: None (occurrence: None)
  Receive Date: 20070924
  Receipt Date: 20070913
  Transmission Date: 20080115
  Serious: Yes (Other)
  Sender: FDA-Public Use
  Company Number: 2007BI017257

PATIENT
  Sex: Female

DRUGS (1)
  1. AVONEX [Suspect]
     Indication: DRUG USE FOR UNKNOWN INDICATION
     Dosage: IM
     Route: 030
     Dates: start: 20030714, end: 20060324

REACTIONS (7)
  - ANAEMIA [None]
  - CARDIAC DISORDER [None]
  - HAEMODIALYSIS [None]
  - LEUKOPENIA [None]
  - RENAL TUBULAR NECROSIS [None]
  - THYROID DISORDER [None]
  - THYROXINE ABNORMAL [None]
